FAERS Safety Report 24756674 (Version 2)
Quarter: 2025Q1

REPORT INFORMATION
  Report Type: Spontaneous
  Country: HU (occurrence: HU)
  Receive Date: 20241220
  Receipt Date: 20250121
  Transmission Date: 20250408
  Serious: Yes (Other)
  Sender: AMGEN
  Company Number: HU-AMGEN-HUNSP2024245612

PATIENT
  Age: 66 Year
  Sex: Male

DRUGS (10)
  1. REPATHA [Suspect]
     Active Substance: EVOLOCUMAB
     Indication: Product used for unknown indication
     Route: 065
     Dates: start: 202412
  2. INCLISIRAN [Concomitant]
     Active Substance: INCLISIRAN
     Indication: Low density lipoprotein increased
  3. Adexor prolong [Concomitant]
     Route: 048
     Dates: start: 202412
  4. Asa protect [Concomitant]
  5. Roxera plus [Concomitant]
  6. Renitec [Concomitant]
  7. INDAPAMIDE [Concomitant]
     Active Substance: INDAPAMIDE
  8. EPLERENONE KRKA [Concomitant]
  9. PANTOPRAZOLE SODIUM [Concomitant]
     Active Substance: PANTOPRAZOLE SODIUM
  10. UNSPECIFIED INGREDIENT [Concomitant]
     Active Substance: UNSPECIFIED INGREDIENT

REACTIONS (1)
  - Erythema multiforme [Unknown]

NARRATIVE: CASE EVENT DATE: 20241201
